FAERS Safety Report 8013076-X (Version None)
Quarter: 2011Q4

REPORT INFORMATION
  Report Type: 
  Country: None (occurrence: None)
  Receive Date: 20111229
  Receipt Date: 20111215
  Transmission Date: 20120403
  Serious: Yes (Hospitalization)
  Sender: FDA-Public Use
  Company Number: ES-RANBAXY-2011R1-51324

PATIENT
  Age: 36 Year
  Sex: Female

DRUGS (3)
  1. IBUPROFEN [Suspect]
     Indication: MYALGIA
     Dosage: UNK, UNK
     Route: 048
  2. IBUPROFEN [Suspect]
     Indication: EAR PAIN
     Dosage: UNK,UNK
     Route: 065
  3. AMOXICILLIN [Concomitant]
     Indication: EAR INFECTION
     Dosage: UNK, UNK
     Route: 065

REACTIONS (1)
  - ENCEPHALITIS [None]
